FAERS Safety Report 4485859-4 (Version None)
Quarter: 2004Q3

REPORT INFORMATION
  Report Type: 
  Country: None (occurrence: None)
  Receive Date: 20040921
  Receipt Date: 20031002
  Transmission Date: 20050211
  Serious: Yes (Death, Hospitalization)
  Sender: FDA-Public Use
  Company Number: 163-20785-03100147

PATIENT
  Age: 56 Year
  Sex: Female
  Weight: 76 kg

DRUGS (17)
  1. THALOMID [Suspect]
     Indication: MULTIPLE MYELOMA
     Dosage: 400 MG, DAILY, ORAL
     Route: 048
     Dates: start: 20030804, end: 20031010
  2. THALOMID [Suspect]
     Indication: MULTIPLE MYELOMA
     Dosage: 400 MG, DAILY, ORAL
     Route: 048
     Dates: start: 20031202, end: 20040201
  3. MELPHALAN (MELPHALAN) [Suspect]
     Indication: MULTIPLE MYELOMA
     Dosage: 300 MG, INTRAVENOUS
     Route: 042
     Dates: start: 20040201
  4. VINCRISTINE [Suspect]
     Indication: MULTIPLE MYELOMA
     Dosage: 0.5 MG, DAILY, INTRAVENOUS
     Route: 042
     Dates: start: 20030804, end: 20030807
  5. ADRIAMYCIN PFS [Suspect]
     Indication: MULTIPLE MYELOMA
     Dosage: 17 MG, DAILY, INTRAVENOUS
     Route: 042
     Dates: start: 20030804, end: 20030807
  6. DEXAMETHASONE [Suspect]
     Indication: MULTIPLE MYELOMA
     Dosage: 40 MG, INTRAVENOUS
     Route: 042
     Dates: start: 20030804, end: 20030807
  7. DEXAMETHASONE [Suspect]
     Indication: MULTIPLE MYELOMA
     Dosage: 40 MG, INTRAVENOUS
     Route: 042
     Dates: start: 20030812, end: 20030815
  8. DEXAMETHASONE [Suspect]
     Indication: MULTIPLE MYELOMA
     Dosage: 40 MG, INTRAVENOUS
     Route: 042
     Dates: start: 20030820, end: 20030823
  9. FLAGYL [Concomitant]
  10. PROCRIT (ERYTROPOIETIN) [Concomitant]
  11. ACYCLOVIR [Concomitant]
  12. FOLIC ACID [Concomitant]
  13. CELEXA [Concomitant]
  14. LOVENOX [Concomitant]
  15. ATIVAN [Concomitant]
  16. OXYCODONE (OXYCODONE) [Concomitant]
  17. MULTI-VITAMIN [Concomitant]

REACTIONS (10)
  - BACTERAEMIA [None]
  - CLOSTRIDIAL INFECTION [None]
  - CONVULSION [None]
  - CORYNEBACTERIUM INFECTION [None]
  - DEATH [None]
  - FALL [None]
  - GASTROINTESTINAL INFECTION [None]
  - HIP FRACTURE [None]
  - PAIN [None]
  - PNEUMOCYSTIS CARINII PNEUMONIA [None]
